FAERS Safety Report 8919714 (Version 1)
Quarter: 2012Q4

REPORT INFORMATION
  Report Type: 
  Country: US (occurrence: US)
  Receive Date: 20121121
  Receipt Date: 20121121
  Transmission Date: 20130627
  Serious: Yes (Hospitalization, Other)
  Sender: FDA-Public Use
  Company Number: US-VIROPHARMA INCORPORATED-20121114CINRY3641

PATIENT
  Sex: Female
  Weight: 99.88 kg

DRUGS (9)
  1. CINRYZE (C1 ESTERASE INHIBITOR (HUMAN)) [Suspect]
     Indication: HEREDITARY ANGIOEDEMA
     Dates: start: 2008
  2. HEART MEDICATIONS [Concomitant]
     Indication: CARDIAC DISORDER
     Dosage: UNKNOWN
     Route: 065
  3. VITAMINS [Concomitant]
     Indication: PRODUCT USED FOR UNKNOWN INDICATION
     Dosage: UNKNOWN
     Route: 065
  4. LANTUS [Concomitant]
     Indication: DIABETES MELLITUS
     Route: 065
  5. REQUIP [Concomitant]
     Indication: RESTLESS LEGS SYNDROME
     Dosage: UNKNOWN
     Route: 065
  6. SOTALOL [Concomitant]
     Indication: ATRIAL FIBRILLATION
     Dosage: UNKNOWN
     Route: 065
  7. SYNTHROID [Concomitant]
     Indication: PRODUCT USED FOR UNKNOWN INDICATION
     Dosage: UNKNOWN
     Route: 065
  8. BABY ASPIRIN [Concomitant]
     Indication: PRODUCT USED FOR UNKNOWN INDICATION
     Dosage: UNKNOWN
     Route: 065
  9. WARFARIN [Concomitant]
     Indication: PRODUCT USED FOR UNKNOWN INDICATION
     Dosage: UNKNOWN
     Route: 065

REACTIONS (7)
  - Atrial fibrillation [Unknown]
  - Intracardiac thrombus [Recovered/Resolved]
  - Cardiac ablation [Recovered/Resolved]
  - Arthropathy [Recovered/Resolved]
  - Knee arthroplasty [Recovered/Resolved]
  - Hereditary angioedema [Not Recovered/Not Resolved]
  - Off label use [Recovered/Resolved]
